FAERS Safety Report 9445065 (Version 3)
Quarter: 2013Q4

REPORT INFORMATION
  Report Type: Spontaneous
  Country: GB (occurrence: GB)
  Receive Date: 20130807
  Receipt Date: 20131030
  Transmission Date: 20140711
  Serious: Yes (Other)
  Sender: FDA-Public Use
  Company Number: PHFR2013GB004508

PATIENT
  Age: 58 Year
  Sex: Male

DRUGS (3)
  1. CLOZARIL [Suspect]
     Indication: SCHIZOPHRENIA
     Dosage: 450 MG (200 MG AT MORNING AND 250 AT NIGHT)
     Route: 048
     Dates: start: 20060626
  2. CLOZARIL [Suspect]
     Dosage: 450 MG (200 MG AT MORNING AND 250 AT NIGHT)
     Dates: start: 20130801
  3. PROPRANOLOL [Concomitant]
     Indication: HYPERTENSION
     Dosage: UNK
     Route: 048

REACTIONS (4)
  - Echocardiogram abnormal [Recovering/Resolving]
  - Electrocardiogram ST segment abnormal [Recovering/Resolving]
  - Sinus rhythm [Unknown]
  - Dizziness [Recovering/Resolving]
